FAERS Safety Report 9828491 (Version 1)
Quarter: 2014Q1

REPORT INFORMATION
  Report Type: Spontaneous
  Country: US (occurrence: US)
  Receive Date: 20140117
  Receipt Date: 20140117
  Transmission Date: 20141002
  Serious: Yes (Disabling)
  Sender: FDA-Public Use
  Company Number: US-009507513-1401USA003906

PATIENT
  Sex: 0

DRUGS (1)
  1. ASMANEX TWISTHALER [Suspect]

REACTIONS (8)
  - Quality of life decreased [Unknown]
  - Drug ineffective [Unknown]
  - Dysphonia [Unknown]
  - Asthma [Unknown]
  - Respiratory rate increased [Unknown]
  - Cough [Unknown]
  - Affect lability [Unknown]
  - Inappropriate schedule of drug administration [Unknown]
